FAERS Safety Report 15242286 (Version 1)
Quarter: 2018Q3

REPORT INFORMATION
  Report Type: Spontaneous
  Country: US (occurrence: US)
  Receive Date: 20180806
  Receipt Date: 20180806
  Transmission Date: 20181010
  Serious: No
  Sender: FDA-Public Use
  Company Number: US-TEVA-2018-US-937903

PATIENT
  Age: 70 Year
  Sex: Female

DRUGS (2)
  1. TRIMETHOPRIM TABLETS 100 MG [Suspect]
     Active Substance: TRIMETHOPRIM
     Indication: PROPHYLAXIS URINARY TRACT INFECTION
     Dosage: TAKE ONE HALF IN THE MORNING AND ONE HALF AT NIGHT.DOSE STRENGTH:  100MG
     Route: 065
     Dates: start: 2015, end: 20180722
  2. METFORMIN [Concomitant]
     Active Substance: METFORMIN HYDROCHLORIDE
     Indication: TYPE 2 DIABETES MELLITUS
     Route: 065

REACTIONS (2)
  - Glossitis [Unknown]
  - Pyrexia [Recovered/Resolved]

NARRATIVE: CASE EVENT DATE: 2018
